FAERS Safety Report 21381348 (Version 4)
Quarter: 2023Q1

REPORT INFORMATION
  Report Type: Report from Study
  Country: US (occurrence: US)
  Receive Date: 20220927
  Receipt Date: 20230224
  Transmission Date: 20230418
  Serious: No
  Sender: FDA-Public Use
  Company Number: US-NOVARTISTESTPH-NVSC2022US217731

PATIENT
  Age: 58 Year
  Sex: Female

DRUGS (1)
  1. ENTRESTO [Suspect]
     Active Substance: SACUBITRIL\VALSARTAN
     Indication: Product used for unknown indication
     Dosage: 1 DOSAGE FORM, BID (EVERY 12 HOURS)
     Route: 048

REACTIONS (6)
  - Feeling abnormal [Unknown]
  - Symptom recurrence [Unknown]
  - Fear [Unknown]
  - Dyspnoea [Unknown]
  - Extrasystoles [Unknown]
  - Product use issue [Unknown]

NARRATIVE: CASE EVENT DATE: 20220923
